FAERS Safety Report 14024921 (Version 3)
Quarter: 2017Q4

REPORT INFORMATION
  Report Type: Report from Study
  Country: CA (occurrence: CA)
  Receive Date: 20170929
  Receipt Date: 20171020
  Transmission Date: 20180321
  Serious: Yes (Hospitalization)
  Sender: FDA-Public Use
  Company Number: CA-HLSUS-2017-CA-000995

PATIENT
  Age: 64 Year
  Sex: Female

DRUGS (3)
  1. PANTOLOC [Concomitant]
     Active Substance: PANTOPRAZOLE SODIUM
     Dosage: 40MG
     Route: 048
     Dates: start: 201701
  2. CLOZARIL [Suspect]
     Active Substance: CLOZAPINE
     Indication: SCHIZOPHRENIA
     Dosage: 350MG DAILY
     Route: 048
     Dates: start: 20121106
  3. ARIMIDEX [Concomitant]
     Active Substance: ANASTROZOLE
     Dosage: 1 MG
     Route: 048
     Dates: start: 201701

REACTIONS (4)
  - Lower limb fracture [Unknown]
  - Upper limb fracture [Recovering/Resolving]
  - Fall [Recovering/Resolving]
  - Hallucination [Unknown]

NARRATIVE: CASE EVENT DATE: 20170910
